FAERS Safety Report 4330471-0 (Version None)
Quarter: 2004Q1

REPORT INFORMATION
  Report Type: 
  Country: None (occurrence: None)
  Receive Date: 20040330
  Receipt Date: 20040316
  Transmission Date: 20041129
  Serious: Yes (Hospitalization)
  Sender: FDA-Public Use
  Company Number: FABR-10395

PATIENT
  Age: 34 Year
  Sex: Male
  Weight: 61 kg

DRUGS (3)
  1. FABRAZYME [Suspect]
     Indication: FABRY'S DISEASE
     Dosage: 70 MG Q2WKS IV
     Route: 042
     Dates: start: 20031008
  2. DIPHENHYDRAMINUM [Concomitant]
  3. ACETAMINOPHEN [Concomitant]

REACTIONS (6)
  - ANGIONEUROTIC OEDEMA [None]
  - BLOOD PRESSURE DECREASED [None]
  - DYSPNOEA [None]
  - INFUSION RELATED REACTION [None]
  - TACHYCARDIA [None]
  - URTICARIA GENERALISED [None]
